FAERS Safety Report 8860746 (Version 2)
Quarter: 2012Q4

REPORT INFORMATION
  Report Type: 
  Country: US (occurrence: US)
  Receive Date: 20121025
  Receipt Date: 20121105
  Transmission Date: 20130627
  Serious: Yes (Other)
  Sender: FDA-Public Use
  Company Number: CHPA2012US014996

PATIENT
  Age: 62 Year
  Sex: Male

DRUGS (3)
  1. EXCEDRIN EXTRA STRENGTH [Suspect]
     Indication: BACK PAIN
     Dosage: 2 DF, QID
     Route: 048
  2. EXCEDRIN EXTRA STRENGTH [Suspect]
     Dosage: 2 DF, Q4H
     Route: 048
  3. ALKA-SELTZER ORIGINAL [Suspect]
     Dosage: Unk, QID

REACTIONS (4)
  - Cyst [Not Recovered/Not Resolved]
  - Disease recurrence [Not Recovered/Not Resolved]
  - Incorrect drug administration duration [Unknown]
  - Drug administration error [Unknown]
